FAERS Safety Report 4693055-0 (Version None)
Quarter: 2005Q2

REPORT INFORMATION
  Report Type: 
  Country: None (occurrence: None)
  Receive Date: 20050617
  Receipt Date: 20050606
  Transmission Date: 20051028
  Serious: Yes (Other)
  Sender: FDA-Public Use
  Company Number: PHNU2005DE02158

PATIENT
  Age: 6 Year
  Sex: Male

DRUGS (1)
  1. SANDIMMUNE [Suspect]
     Indication: CORNEAL TRANSPLANT
     Dates: start: 20040901, end: 20050401

REACTIONS (1)
  - EPILEPSY [None]
